FAERS Safety Report 6353623 (Version 2)
Quarter: 2022Q2

REPORT INFORMATION
  Report Type: Spontaneous
  Country: HK (occurrence: HK)
  Receive Date: 20070710
  Receipt Date: 20220411
  Transmission Date: 20220720
  Serious: Yes (Death, Life-Threatening, Hospitalization, Other)
  Sender: FDA-Public Use
  Company Number: HK-SANOFI-SYNTHELABO-A01200707290

PATIENT
  Age: 28 Year
  Sex: Female

DRUGS (1)
  1. HYDROXYCHLOROQUINE SULFATE [Suspect]
     Active Substance: HYDROXYCHLOROQUINE SULFATE
     Indication: Systemic lupus erythematosus
     Dosage: 100 TABLETS OF 200 MG HYDROXYCHLOROQUINE (EACH TABLET CONTAINING 155 MG HYDROXYCHLOROQUINE BASE)
     Route: 048
     Dates: start: 200608, end: 200608

REACTIONS (10)
  - Cardiac arrest [Fatal]
  - Ventricular tachycardia [Fatal]
  - Intentional overdose [Fatal]
  - Toxicity to various agents [Fatal]
  - Ejection fraction decreased [Fatal]
  - Coma [Recovered/Resolved]
  - Hypotension [Recovered/Resolved]
  - Hypokalaemia [Recovered/Resolved]
  - Conduction disorder [Fatal]
  - Hypoglycaemia [Recovered/Resolved]

NARRATIVE: CASE EVENT DATE: 20060801
